FAERS Safety Report 5237293-7 (Version None)
Quarter: 2007Q1

REPORT INFORMATION
  Report Type: 
  Country: None (occurrence: None)
  Receive Date: 20070213
  Receipt Date: 20070202
  Transmission Date: 20070707
  Serious: Yes (Hospitalization, Disabling)
  Sender: FDA-Public Use
  Company Number: US-JNJFOC-20041000343

PATIENT
  Sex: Male
  Weight: 90.72 kg

DRUGS (9)
  1. LEVAQUIN [Suspect]
     Indication: PANCREATITIS
     Route: 042
     Dates: start: 20040909, end: 20040914
  2. LEVAQUIN [Suspect]
     Route: 048
     Dates: start: 20040914
  3. OMPRAZOLE [Concomitant]
  4. ROXICET [Concomitant]
  5. MYLANTA [Concomitant]
  6. IMIPENUM [Concomitant]
  7. PERCOCET [Concomitant]
  8. MALLOX [Concomitant]
  9. DILAUDID [Concomitant]

REACTIONS (9)
  - ARTHRALGIA [None]
  - CELLULITIS [None]
  - HYDRONEPHROSIS [None]
  - NEUROPATHY PERIPHERAL [None]
  - ONYCHOCLASIS [None]
  - RENAL FAILURE [None]
  - SKIN BURNING SENSATION [None]
  - STASIS DERMATITIS [None]
  - TOXIC EPIDERMAL NECROLYSIS [None]
